FAERS Safety Report 8514993-4 (Version None)
Quarter: 2012Q3

REPORT INFORMATION
  Report Type: 
  Country: None (occurrence: None)
  Receive Date: 20120717
  Receipt Date: 20090528
  Transmission Date: 20120928
  Serious: Yes (Death, Hospitalization)
  Sender: FDA-Public Use
  Company Number: US-ROCHE-1086897

PATIENT
  Sex: Male

DRUGS (2)
  1. LUCENTIS [Suspect]
     Indication: AGE-RELATED MACULAR DEGENERATION
     Dates: start: 20060918, end: 20090312
  2. LUCENTIS [Suspect]
     Dates: start: 20090312, end: 20090312

REACTIONS (4)
  - PNEUMONIA [None]
  - DEATH [None]
  - FALL [None]
  - ULCER HAEMORRHAGE [None]
